FAERS Safety Report 12632609 (Version 2)
Quarter: 2016Q3

REPORT INFORMATION
  Report Type: Spontaneous
  Country: US (occurrence: US)
  Receive Date: 20160808
  Receipt Date: 20160808
  Transmission Date: 20161109
  Serious: No
  Sender: FDA-Public Use
  Company Number: US-BEH-2015056220

PATIENT
  Sex: Male
  Weight: 85 kg

DRUGS (8)
  1. HIZENTRA [Suspect]
     Active Substance: HUMAN IMMUNOGLOBULIN G
     Indication: IMMUNODEFICIENCY COMMON VARIABLE
     Route: 058
  2. MULTIVITAMINS [Concomitant]
     Active Substance: VITAMINS
  3. DIPHENHYDRAMINE. [Concomitant]
     Active Substance: DIPHENHYDRAMINE
  4. RANITIDINE. [Concomitant]
     Active Substance: RANITIDINE
  5. EPIPEN [Concomitant]
     Active Substance: EPINEPHRINE
  6. VITAMIN D [Concomitant]
     Active Substance: CHOLECALCIFEROL
  7. MUCINEX ER [Concomitant]
  8. ZYRTEC [Concomitant]
     Active Substance: CETIRIZINE HYDROCHLORIDE

REACTIONS (1)
  - Sinusitis [Unknown]
